FAERS Safety Report 4268259-1 (Version None)
Quarter: 2004Q1

REPORT INFORMATION
  Report Type: 
  Country: None (occurrence: None)
  Receive Date: 20040112
  Receipt Date: 20020125
  Transmission Date: 20041129
  Serious: Yes (Death, Hospitalization)
  Sender: FDA-Public Use
  Company Number: US-BRISTOL-MYERS SQUIBB COMPANY-11686805

PATIENT
  Age: 75 Year
  Sex: Female
  Weight: 79 kg

DRUGS (14)
  1. CARBOPLATIN [Suspect]
     Indication: NON-SMALL CELL LUNG CANCER
     Route: 042
     Dates: start: 20020115, end: 20020115
  2. TAXOL [Suspect]
     Indication: NON-SMALL CELL LUNG CANCER
     Route: 042
     Dates: start: 20020115, end: 20020115
  3. INSULIN [Concomitant]
     Route: 058
     Dates: start: 20020115
  4. ESTRACE [Concomitant]
     Route: 048
     Dates: start: 19740101
  5. ZOCOR [Concomitant]
     Route: 048
     Dates: start: 19960101
  6. LANOXIN [Concomitant]
     Route: 048
     Dates: start: 20011201
  7. CARDIZEM [Concomitant]
     Route: 048
     Dates: start: 20011201
  8. PRILOSEC [Concomitant]
     Route: 048
     Dates: start: 19960101
  9. ATIVAN [Concomitant]
     Route: 048
     Dates: start: 20011201
  10. ZESTRIL [Concomitant]
     Route: 048
     Dates: start: 20011201
  11. LASIX [Concomitant]
     Route: 048
     Dates: start: 19960101
  12. MICRO-K [Concomitant]
     Route: 048
     Dates: start: 19960101
  13. GLUTAMINE [Concomitant]
     Route: 048
     Dates: start: 20020115
  14. COMPAZINE [Concomitant]
     Route: 048
     Dates: start: 20020115

REACTIONS (3)
  - DEPRESSED LEVEL OF CONSCIOUSNESS [None]
  - ILEUS [None]
  - PNEUMONIA ASPIRATION [None]
